FAERS Safety Report 14653844 (Version 3)
Quarter: 2018Q2

REPORT INFORMATION
  Report Type: Spontaneous
  Country: US (occurrence: US)
  Receive Date: 20180319
  Receipt Date: 20180420
  Transmission Date: 20180711
  Serious: No
  Sender: FDA-Public Use
  Company Number: US-PFIZER INC-2018112607

PATIENT
  Age: 69 Year
  Sex: Female

DRUGS (1)
  1. LYRICA [Suspect]
     Active Substance: PREGABALIN
     Indication: FIBROMYALGIA
     Dosage: 150 MG, 2X/DAY (2-75 MG 2X DAILY)

REACTIONS (4)
  - Pain [Recovered/Resolved]
  - Insomnia [Recovered/Resolved]
  - Bedridden [Recovered/Resolved]
  - Weight increased [Recovered/Resolved]
